FAERS Safety Report 19196044 (Version 1)
Quarter: 2021Q2

REPORT INFORMATION
  Report Type: Spontaneous
  Country: CA (occurrence: CA)
  Receive Date: 20210429
  Receipt Date: 20210429
  Transmission Date: 20210717
  Serious: Yes (Hospitalization)
  Sender: FDA-Public Use
  Company Number: CA-BAYER-2021-128435

PATIENT
  Sex: Male

DRUGS (13)
  1. CANDESARTAN. [Suspect]
     Active Substance: CANDESARTAN
     Route: 048
  2. VALSARTAN. [Suspect]
     Active Substance: VALSARTAN
     Dosage: 80 MG
  3. TAZOBACTAM [Suspect]
     Active Substance: TAZOBACTAM
     Dosage: 4 G
  4. SALBUTAMOL [Suspect]
     Active Substance: ALBUTEROL
  5. IMURAN [Suspect]
     Active Substance: AZATHIOPRINE
     Indication: CROHN^S DISEASE
     Dosage: 200 MG
  6. SILDENAFIL CITRATE. [Suspect]
     Active Substance: SILDENAFIL CITRATE
  7. SALBUTAMOL [Suspect]
     Active Substance: ALBUTEROL
  8. AZATHIOPRINE. [Suspect]
     Active Substance: AZATHIOPRINE
  9. IMURAN [Suspect]
     Active Substance: AZATHIOPRINE
     Indication: CROHN^S DISEASE
     Dosage: 50 MG, QD
     Route: 048
  10. NAPROXEN SODIUM ({= 220 MG) [Suspect]
     Active Substance: NAPROXEN SODIUM
  11. ACETAMINOPHEN. [Suspect]
     Active Substance: ACETAMINOPHEN
  12. BUDESONIDE;FORMOTEROL FUMARATE DIHYDRATE [Suspect]
     Active Substance: BUDESONIDE\FORMOTEROL FUMARATE DIHYDRATE
     Route: 045
  13. PREDNISONE. [Suspect]
     Active Substance: PREDNISONE

REACTIONS (5)
  - Lymphocyte count abnormal [Unknown]
  - Platelet count decreased [Unknown]
  - Pyrexia [Unknown]
  - Chills [Unknown]
  - Neutrophil count increased [Unknown]
